FAERS Safety Report 9759664 (Version 1)
Quarter: 2013Q4

REPORT INFORMATION
  Report Type: Spontaneous
  Country: US (occurrence: US)
  Receive Date: 20131216
  Receipt Date: 20131216
  Transmission Date: 20140711
  Serious: No
  Sender: FDA-Public Use
  Company Number: US-GILEAD-2010-0028605

PATIENT
  Sex: Female
  Weight: 61.23 kg

DRUGS (17)
  1. LETAIRIS [Suspect]
     Indication: PULMONARY ARTERIAL HYPERTENSION
     Route: 048
     Dates: start: 20091006
  2. DILUENT EPOPROSTENOL [Concomitant]
  3. REMODULIN [Concomitant]
  4. FUROSEMIDE [Concomitant]
  5. CENTRUM SILVER [Concomitant]
  6. VITAMIN C [Concomitant]
  7. SUPER B COMPLEX [Concomitant]
  8. CALCIUM [Concomitant]
  9. SILDEFANIL [Concomitant]
  10. OXYGEN [Concomitant]
  11. TYLENOL ER [Concomitant]
  12. BUPROPION SR [Concomitant]
  13. SOLIUM CHLORIDE 0.9% [Concomitant]
  14. VIAGRA [Concomitant]
  15. WARFARIN SODIUM [Concomitant]
  16. POTASSIUM CHLORIDE [Concomitant]
  17. OMEPRAZOLE [Concomitant]

REACTIONS (1)
  - Abdominal distension [Unknown]
